FAERS Safety Report 16184756 (Version 1)
Quarter: 2019Q2

REPORT INFORMATION
  Report Type: Spontaneous
  Country: US (occurrence: US)
  Receive Date: 20190410
  Receipt Date: 20190410
  Transmission Date: 20190711
  Serious: Yes (Life-Threatening)
  Sender: FDA-Public Use
  Company Number: None

PATIENT
  Age: 65 Year
  Sex: Female
  Weight: 67.5 kg

DRUGS (16)
  1. LIBRAX 5-2.5MG [Concomitant]
  2. FLUOXETINE 40MG [Concomitant]
     Active Substance: FLUOXETINE HYDROCHLORIDE
  3. ALLEGRA 60 MG [Concomitant]
     Dates: start: 20190226, end: 20190226
  4. CRESTOR [Concomitant]
     Active Substance: ROSUVASTATIN CALCIUM
  5. VITAMIN B12 500MCG [Concomitant]
  6. ASPIRIN 81 MG [Concomitant]
     Active Substance: ASPIRIN
  7. VITAMIN D3 400 UNITS [Concomitant]
  8. PLAQUENIL 200MG BID [Concomitant]
  9. NASONEX [Concomitant]
     Active Substance: MOMETASONE FUROATE
  10. SUCRALFATE 1 GRAM [Concomitant]
  11. INFLECTRA [Suspect]
     Active Substance: INFLIXIMAB-DYYB
     Indication: RHEUMATOID ARTHRITIS
     Dosage: ?          OTHER FREQUENCY:ONCE;?
     Route: 041
  12. ACETAMINOPHEN 1000MG [Concomitant]
     Dates: start: 20190226, end: 20190226
  13. ADVAIR DISKUS 250-50 [Concomitant]
  14. PROTONIX 40 MG BID [Concomitant]
  15. PREDNISONE 7.5 MG [Concomitant]
  16. RANITIDINE. [Concomitant]
     Active Substance: RANITIDINE

REACTIONS (3)
  - Ejection fraction decreased [None]
  - Ventricular fibrillation [None]
  - Cardiac arrest [None]

NARRATIVE: CASE EVENT DATE: 20190305
